FAERS Safety Report 5006404-0 (Version None)
Quarter: 2006Q2

REPORT INFORMATION
  Report Type: 
  Country: None (occurrence: None)
  Receive Date: 20060516
  Receipt Date: 20060501
  Transmission Date: 20061013
  Serious: Yes (Hospitalization)
  Sender: FDA-Public Use
  Company Number: 2006PV012299

PATIENT
  Age: 61 Year
  Sex: Male
  Weight: 144.6975 kg

DRUGS (11)
  1. BYETTA [Suspect]
     Indication: DIABETES MELLITUS NON-INSULIN-DEPENDENT
     Dosage: 5 MCG; BID; SC
     Route: 058
     Dates: start: 20060404, end: 20060418
  2. GLIPIZIDE [Concomitant]
  3. ACTOS [Concomitant]
  4. LESCOL XL [Concomitant]
  5. CARDIZEM CD [Concomitant]
  6. ACCUPRIL [Concomitant]
  7. ASPIRIN [Concomitant]
  8. GLUCOPHAGE XR [Concomitant]
  9. HYDROCHLOROTHIAZIDE [Concomitant]
  10. DICLOFENAC POTASSIUM [Concomitant]
  11. NOVOLOG MIX 70/30 [Concomitant]

REACTIONS (8)
  - ATRIOVENTRICULAR BLOCK COMPLETE [None]
  - BLOOD CREATINE PHOSPHOKINASE MB INCREASED [None]
  - BLOOD PRESSURE INADEQUATELY CONTROLLED [None]
  - BUNDLE BRANCH BLOCK RIGHT [None]
  - MYOGLOBIN BLOOD INCREASED [None]
  - OEDEMA [None]
  - PEDAL PULSE ABSENT [None]
  - TROPONIN INCREASED [None]
